FAERS Safety Report 10734758 (Version 4)
Quarter: 2015Q2

REPORT INFORMATION
  Report Type: Report from Study
  Country: US (occurrence: US)
  Receive Date: 20150123
  Receipt Date: 20150619
  Transmission Date: 20150821
  Serious: Yes (Death)
  Sender: FDA-Public Use
  Company Number: US-AMGEN INC.-USASL2014100112

PATIENT
  Age: 61 Year
  Sex: Male

DRUGS (1)
  1. KYPROLIS [Suspect]
     Active Substance: CARFILZOMIB
     Indication: PRODUCT USED FOR UNKNOWN INDICATION
     Dosage: 59.4 MG, 2 TIMES/WK
     Route: 042
     Dates: start: 20141216, end: 20150520

REACTIONS (5)
  - Cataract [Unknown]
  - Fatigue [Unknown]
  - Thinking abnormal [Unknown]
  - Malaise [Unknown]
  - Death [Fatal]

NARRATIVE: CASE EVENT DATE: 2015
